FAERS Safety Report 9211007 (Version 2)
Quarter: 2013Q2

REPORT INFORMATION
  Report Type: Spontaneous
  Country: IT (occurrence: IT)
  Receive Date: 20130404
  Receipt Date: 20130422
  Transmission Date: 20140414
  Serious: Yes (Hospitalization)
  Sender: FDA-Public Use
  Company Number: IT-UCBSA-081794

PATIENT
  Age: 74 Year
  Sex: Female
  Weight: 42 kg

DRUGS (12)
  1. NEUPRO [Suspect]
     Indication: PARKINSON^S DISEASE
     Route: 062
     Dates: start: 20130109, end: 20130116
  2. NEUPRO [Suspect]
     Indication: PARKINSON^S DISEASE
     Route: 062
     Dates: start: 20130117, end: 20130127
  3. NEUPRO [Suspect]
     Indication: PARKINSON^S DISEASE
     Route: 062
     Dates: start: 20130122, end: 20130122
  4. NEUPRO [Suspect]
     Indication: PARKINSON^S DISEASE
     Route: 062
     Dates: start: 20130129, end: 20130129
  5. EFEXOR [Suspect]
     Indication: DEPRESSION
     Dosage: STRENGTH-37.5 MG
     Route: 048
     Dates: start: 20130109, end: 20130109
  6. EFEXOR [Suspect]
     Indication: DEPRESSION
     Dosage: 37.5 MG PROLONGED RELEASE
     Route: 048
     Dates: start: 20130111, end: 20130127
  7. EFEXOR [Suspect]
     Indication: DEPRESSION
     Dosage: STRENGTH-75 MG
     Route: 048
     Dates: start: 20130128, end: 20130129
  8. BETOTOL [Concomitant]
  9. SIRIO [Concomitant]
     Indication: PARKINSON^S DISEASE
     Dosage: 25+100 MG
     Route: 048
     Dates: end: 20130124
  10. HALCION [Concomitant]
     Indication: DEPRESSION
     Dosage: STRENGTH-0.25 MG
     Route: 048
  11. STALEVO [Concomitant]
     Indication: PARKINSON^S DISEASE
     Route: 048
     Dates: end: 20130129
  12. SINEMET [Concomitant]
     Indication: PARKINSON^S DISEASE
     Route: 048
     Dates: end: 20130129

REACTIONS (3)
  - Epilepsy [Recovered/Resolved]
  - Hallucination [Unknown]
  - Dysphagia [Unknown]
